FAERS Safety Report 6061633-2 (Version None)
Quarter: 2009Q1

REPORT INFORMATION
  Report Type: 
  Country: None (occurrence: None)
  Receive Date: 20090202
  Receipt Date: 20090128
  Transmission Date: 20090719
  Serious: Yes (Other)
  Sender: FDA-Public Use
  Company Number: A0765454A

PATIENT
  Age: 53 Year
  Sex: Male

DRUGS (5)
  1. ADVAIR DISKUS 100/50 [Suspect]
     Indication: CHRONIC OBSTRUCTIVE PULMONARY DISEASE
     Dosage: 1PUFF TWICE PER DAY
     Route: 055
     Dates: start: 20070101, end: 20090116
  2. CLARITIN-D [Concomitant]
  3. NORVASC [Concomitant]
  4. LISINOPRIL [Concomitant]
  5. ATENOLOL [Concomitant]

REACTIONS (8)
  - CATARACT [None]
  - DRUG INEFFECTIVE [None]
  - HEADACHE [None]
  - LIP PAIN [None]
  - NASOPHARYNGITIS [None]
  - ORAL PAIN [None]
  - PULMONARY CONGESTION [None]
  - SECRETION DISCHARGE [None]
